FAERS Safety Report 14550352 (Version 4)
Quarter: 2018Q2

REPORT INFORMATION
  Report Type: Report from Study
  Country: JP (occurrence: JP)
  Receive Date: 20180219
  Receipt Date: 20180420
  Transmission Date: 20180711
  Serious: Yes (Hospitalization)
  Sender: FDA-Public Use
  Company Number: JP-AMGEN-JPNCT2018021696

PATIENT
  Age: 67 Year
  Sex: Male
  Weight: 76.55 kg

DRUGS (12)
  1. METHYLPREDNISOLONE SODIUM SUCCINATE. [Concomitant]
     Active Substance: METHYLPREDNISOLONE SODIUM SUCCINATE
     Dosage: 125 MG, UNK
     Route: 042
     Dates: start: 20171122, end: 20171124
  2. IMIDAPRIL HYDROCHLORIDE [Concomitant]
     Active Substance: IMIDAPRIL HYDROCHLORIDE
     Dosage: 5 MG, UNK
     Route: 048
     Dates: start: 20151127
  3. WHITE PETROLATUM [Concomitant]
     Active Substance: PETROLATUM
     Dosage: 1 UNK, UNK
     Route: 061
     Dates: start: 20170606, end: 20171121
  4. BETAMETHASONE VALERATE W/GENTAMICIN SULFATE [Concomitant]
     Dosage: 1 UNK, UNK
     Route: 061
     Dates: start: 20170620
  5. MAGNESIUM OXIDE. [Concomitant]
     Active Substance: MAGNESIUM OXIDE
     Dosage: 2000 MG, UNK
     Route: 048
     Dates: start: 20170815, end: 20171121
  6. ESOMEPRAZOLE MAGNESIUM. [Concomitant]
     Active Substance: ESOMEPRAZOLE MAGNESIUM
     Dosage: 20 MG, UNK
     Route: 048
     Dates: start: 20140407
  7. METRONIDAZOLE. [Concomitant]
     Active Substance: METRONIDAZOLE
     Dosage: 1 UNK, UNK
     Route: 061
     Dates: start: 20170915
  8. CEFTRIAXONE SODIUM. [Concomitant]
     Active Substance: CEFTRIAXONE SODIUM
     Dosage: 1 G, UNK
     Route: 042
     Dates: start: 20171122, end: 20171128
  9. TALIMOGENE LAHERPAREPVEC [Suspect]
     Active Substance: TALIMOGENE LAHERPAREPVEC
     Indication: MELANOMA RECURRENT
     Dosage: 4 ML, UNK
     Route: 026
     Dates: start: 20170307, end: 20171107
  10. CADEXOMER IODINE [Concomitant]
     Active Substance: CADEXOMER IODINE
     Dosage: 1 UNK, UNK
     Route: 061
     Dates: start: 20170831
  11. NIVOLUMAB [Concomitant]
     Active Substance: NIVOLUMAB
     Dosage: UNK
     Dates: start: 20171121
  12. KETOCONAZOLE. [Concomitant]
     Active Substance: KETOCONAZOLE
     Dosage: 1 UNK, UNK
     Route: 061
     Dates: start: 20170425, end: 20171121

REACTIONS (1)
  - Benign prostatic hyperplasia [Recovered/Resolved]

NARRATIVE: CASE EVENT DATE: 20180215
